FAERS Safety Report 15090050 (Version 2)
Quarter: 2018Q4

REPORT INFORMATION
  Report Type: Report from Study
  Country: DE (occurrence: DE)
  Receive Date: 20180629
  Receipt Date: 20181011
  Transmission Date: 20190204
  Serious: Yes (Hospitalization, Other)
  Sender: FDA-Public Use
  Company Number: DE-TEVA-2018-DE-914727

PATIENT
  Sex: Female

DRUGS (10)
  1. BISOPROLOL 1A PHARMA [Concomitant]
     Active Substance: BISOPROLOL
     Indication: CARDIAC DISORDER
     Dosage: 5 UNK, UNK?-0-?-0
     Route: 065
  2. ELIQUIS [Concomitant]
     Active Substance: APIXABAN
  3. DIGITOXIN [Concomitant]
     Active Substance: DIGITOXIN
     Indication: CARDIAC DISORDER
     Dosage: .07 MILLIGRAM DAILY;
     Route: 048
     Dates: start: 20160101
  4. ELIQUIS [Concomitant]
     Active Substance: APIXABAN
     Indication: ANTICOAGULANT THERAPY
     Dosage: 10 MILLIGRAM DAILY;
     Route: 048
     Dates: start: 20160101
  5. BISOLICH [Concomitant]
     Active Substance: BISOPROLOL FUMARATE
     Indication: PRODUCT USED FOR UNKNOWN INDICATION
     Dosage: 5 MILLIGRAM DAILY;
     Route: 048
     Dates: start: 20160101
  6. TAVOR (LORAZEPAM) [Concomitant]
     Active Substance: LORAZEPAM
     Indication: PRODUCT USED FOR UNKNOWN INDICATION
     Dosage: 0.5 OT, PRN, ONLY AT NIGHT
     Route: 048
     Dates: start: 20160101
  7. OMEPRAZOLE. [Concomitant]
     Active Substance: OMEPRAZOLE
     Indication: PRODUCT USED FOR UNKNOWN INDICATION
     Dosage: 20 OT DAILY
     Route: 048
  8. OMEPRAZOLE. [Concomitant]
     Active Substance: OMEPRAZOLE
     Indication: PROPHYLAXIS
     Dosage: 20 MILLIGRAM DAILY;
     Route: 048
  9. LISINOPRIL COMP [Suspect]
     Active Substance: HYDROCHLOROTHIAZIDE\LISINOPRIL
     Indication: PRODUCT USED FOR UNKNOWN INDICATION
     Route: 048
     Dates: end: 2014
  10. LISINOPRIL 1A PHARMA [Suspect]
     Active Substance: LISINOPRIL
     Indication: CARDIAC FAILURE CHRONIC
     Route: 048
     Dates: start: 2005, end: 20151231

REACTIONS (20)
  - Restless legs syndrome [Not Recovered/Not Resolved]
  - Poor quality sleep [Unknown]
  - Road traffic accident [Unknown]
  - Blood pressure fluctuation [Recovering/Resolving]
  - Hypotension [Recovering/Resolving]
  - Cataract [Recovered/Resolved]
  - Hypertension [Recovering/Resolving]
  - Arrhythmia [Unknown]
  - Restlessness [Unknown]
  - Dizziness [Recovering/Resolving]
  - Lumbar spinal stenosis [Recovered/Resolved]
  - Visual impairment [Recovering/Resolving]
  - Myalgia [Recovered/Resolved]
  - Type 2 diabetes mellitus [Recovering/Resolving]
  - Pigmentation disorder [Recovered/Resolved]
  - Blood pressure increased [Recovering/Resolving]
  - Vomiting [Recovering/Resolving]
  - Ulna fracture [Unknown]
  - Thrombosis [Recovered/Resolved]
  - Osteoarthritis [Recovered/Resolved]

NARRATIVE: CASE EVENT DATE: 2005
